FAERS Safety Report 20877787 (Version 5)
Quarter: 2022Q3

REPORT INFORMATION
  Report Type: Spontaneous
  Country: IN (occurrence: IN)
  Receive Date: 20220526
  Receipt Date: 20220916
  Transmission Date: 20221026
  Serious: Yes (Other)
  Sender: FDA-Public Use
  Company Number: IN-PFIZER INC-202200313735

PATIENT
  Age: 68 Year
  Sex: Female
  Weight: 56 kg

DRUGS (7)
  1. PALBOCICLIB [Suspect]
     Active Substance: PALBOCICLIB
     Indication: Breast cancer
     Dosage: 1X/DAY FOR 21 DAYS THEN 7 DAYS GAP
     Route: 048
     Dates: start: 20211027
  2. ZA [Concomitant]
     Dosage: UNK
  3. LETROZOLE [Concomitant]
     Active Substance: LETROZOLE
     Dosage: 2.5MG PO ONCE DAILY
     Route: 048
  4. CALCIUM CARBONATE\CHOLECALCIFEROL [Concomitant]
     Active Substance: CALCIUM CARBONATE\CHOLECALCIFEROL
     Dosage: 1 TAB TWICE DAILY
  5. CREMAFFIN [Concomitant]
     Indication: Constipation
     Dosage: 10ML SOS
  6. ULTRACET [Concomitant]
     Active Substance: ACETAMINOPHEN\TRAMADOL HYDROCHLORIDE
     Indication: Pain
     Dosage: 1 TAB SOS (MAX 3/DAY)
  7. HYDROCORTISONE [Concomitant]
     Active Substance: HYDROCORTISONE
     Dosage: UNK

REACTIONS (16)
  - Red blood cell count decreased [Unknown]
  - Neutrophil count decreased [Unknown]
  - Toothache [Recovered/Resolved]
  - Haemoglobin decreased [Unknown]
  - White blood cell count decreased [Unknown]
  - Red cell distribution width increased [Unknown]
  - Cough [Unknown]
  - Myalgia [Not Recovered/Not Resolved]
  - Physical examination abnormal [Unknown]
  - Oedema peripheral [Unknown]
  - Pruritus [Unknown]
  - Lymphoedema [Unknown]
  - Platelet count abnormal [Unknown]
  - Blood pressure increased [Unknown]
  - Rash [Unknown]
  - Pain [Not Recovered/Not Resolved]

NARRATIVE: CASE EVENT DATE: 20211227
